FAERS Safety Report 8228140-X (Version None)
Quarter: 2012Q1

REPORT INFORMATION
  Report Type: 
  Country: None (occurrence: None)
  Receive Date: 20120322
  Receipt Date: 20111215
  Transmission Date: 20120608
  Serious: No
  Sender: FDA-Public Use
  Company Number: US-BRISTOL-MYERS SQUIBB COMPANY-16296444

PATIENT
  Age: 58 Year
  Sex: Male
  Weight: 69 kg

DRUGS (1)
  1. ERBITUX [Suspect]
     Dosage: 2WKS AGO

REACTIONS (3)
  - SKIN DISORDER [None]
  - ACNE [None]
  - RASH [None]
